FAERS Safety Report 25223106 (Version 1)
Quarter: 2025Q2

REPORT INFORMATION
  Report Type: Spontaneous
  Country: IT (occurrence: IT)
  Receive Date: 20250422
  Receipt Date: 20250422
  Transmission Date: 20250717
  Serious: Yes (Other)
  Sender: FRESENIUS KABI
  Company Number: IT-009507513-2269716

PATIENT
  Age: 54 Year
  Sex: Female

DRUGS (9)
  1. ROCURONIUM [Suspect]
     Active Substance: ROCURONIUM BROMIDE
     Indication: General anaesthesia
  2. ACETAMINOPHEN [Suspect]
     Active Substance: ACETAMINOPHEN
     Indication: General anaesthesia
  3. PROPOFOL [Suspect]
     Active Substance: PROPOFOL
     Indication: General anaesthesia
  4. SUFENTANIL [Suspect]
     Active Substance: SUFENTANIL
     Indication: General anaesthesia
  5. REMIFENTANIL [Suspect]
     Active Substance: REMIFENTANIL
     Indication: General anaesthesia
  6. CEFAZOLIN [Suspect]
     Active Substance: CEFAZOLIN
     Indication: General anaesthesia
  7. PANTOPRAZOLE [Suspect]
     Active Substance: PANTOPRAZOLE
     Indication: General anaesthesia
  8. LEVOTHYROXINE [Concomitant]
     Active Substance: LEVOTHYROXINE
     Indication: Autoimmune thyroiditis
  9. VITAMIN D [Concomitant]
     Active Substance: VITAMIN D NOS
     Indication: Osteopenia
     Dosage: 25000 UNITS/MONTH

REACTIONS (1)
  - Anaphylactic reaction [Recovered/Resolved]
